FAERS Safety Report 8583433-1 (Version None)
Quarter: 2012Q3

REPORT INFORMATION
  Report Type: 
  Country: None (occurrence: None)
  Receive Date: 20120809
  Receipt Date: 20120801
  Transmission Date: 20120928
  Serious: Yes (Other)
  Sender: FDA-Public Use
  Company Number: US-BAYER-2012-078612

PATIENT
  Sex: Female

DRUGS (2)
  1. MIRENA [Suspect]
     Indication: CONTRACEPTION
     Dosage: 20 MCG/24HR, CONT
     Dates: start: 20080201
  2. MIRENA [Suspect]
     Indication: MENSTRUAL CYCLE MANAGEMENT

REACTIONS (12)
  - PAIN [None]
  - POLYMENORRHOEA [None]
  - PITUITARY TUMOUR [None]
  - NERVE INJURY [None]
  - COELIAC DISEASE [None]
  - FATIGUE [None]
  - AUTOIMMUNE THYROIDITIS [None]
  - INTERVERTEBRAL DISC PROTRUSION [None]
  - STAPHYLOCOCCAL INFECTION [None]
  - WEIGHT DECREASED [None]
  - MENOPAUSE [None]
  - UMBILICAL HERNIA [None]
